FAERS Safety Report 13013911 (Version 2)
Quarter: 2016Q4

REPORT INFORMATION
  Report Type: Spontaneous
  Country: US (occurrence: US)
  Receive Date: 20161209
  Receipt Date: 20161221
  Transmission Date: 20170207
  Serious: Yes (Death, Other)
  Sender: FDA-Public Use
  Company Number: US-CELGENEUS-USA-2016122338

PATIENT
  Age: 54 Year
  Sex: Female

DRUGS (1)
  1. REVLIMID [Suspect]
     Active Substance: LENALIDOMIDE
     Indication: DIFFUSE LARGE B-CELL LYMPHOMA
     Dosage: 25 MG
     Route: 048
     Dates: start: 20160818, end: 20160927

REACTIONS (2)
  - Diffuse large B-cell lymphoma [Unknown]
  - Death [Fatal]

NARRATIVE: CASE EVENT DATE: 20161106
